APPROVED DRUG PRODUCT: VORICONAZOLE
Active Ingredient: VORICONAZOLE
Strength: 200MG/5ML
Dosage Form/Route: FOR SUSPENSION;ORAL
Application: A211598 | Product #001 | TE Code: AB
Applicant: HETERO LABS LTD UNIT V
Approved: Aug 8, 2025 | RLD: No | RS: No | Type: RX